FAERS Safety Report 26078379 (Version 1)
Quarter: 2025Q4

REPORT INFORMATION
  Report Type: Spontaneous
  Country: CA (occurrence: CA)
  Receive Date: 20251122
  Receipt Date: 20251122
  Transmission Date: 20260118
  Serious: Yes (Hospitalization)
  Sender: BOEHRINGER INGELHEIM
  Company Number: CA-BoehringerIngelheim-2025-BI-108438

PATIENT
  Age: 56 Year
  Sex: Male

DRUGS (8)
  1. MIRAPEX [Suspect]
     Active Substance: PRAMIPEXOLE DIHYDROCHLORIDE
     Indication: Product used for unknown indication
  2. AMANTADINE [Suspect]
     Active Substance: AMANTADINE
     Indication: Product used for unknown indication
  3. VYALEV [Suspect]
     Active Substance: FOSCARBIDOPA\FOSLEVODOPA
     Indication: Product used for unknown indication
  4. VYALEV [Suspect]
     Active Substance: FOSCARBIDOPA\FOSLEVODOPA
  5. MELATONIN [Concomitant]
     Active Substance: MELATONIN
     Indication: Product used for unknown indication
  6. ACETAMINOPHEN [Concomitant]
     Active Substance: ACETAMINOPHEN
     Indication: Product used for unknown indication
  7. LEVODOPA CARDIBOPA [Concomitant]
     Indication: Product used for unknown indication
  8. PRAMIPEXOLE DIHYDROCHLORIDE [Concomitant]
     Active Substance: PRAMIPEXOLE DIHYDROCHLORIDE
     Indication: Product used for unknown indication

REACTIONS (20)
  - Depression [Recovered/Resolved]
  - Food allergy [Recovered/Resolved]
  - Catheter site pain [Recovered/Resolved]
  - Product sterility issue [Recovered/Resolved]
  - Dermatitis allergic [Recovered/Resolved]
  - Device use error [Recovered/Resolved]
  - Device physical property issue [Recovered/Resolved]
  - Device dislocation [Recovered/Resolved]
  - Device placement issue [Recovered/Resolved]
  - Infusion site mass [Recovered/Resolved]
  - Infusion site pain [Recovered/Resolved]
  - Clumsiness [Recovered/Resolved]
  - Mania [Recovered/Resolved]
  - Dyskinesia [Recovered/Resolved]
  - Poor quality sleep [Recovered/Resolved]
  - Panic reaction [Recovered/Resolved]
  - On and off phenomenon [Recovered/Resolved]
  - Hallucination, auditory [Recovered/Resolved]
  - Hallucination, visual [Recovered/Resolved]
  - Daydreaming [Recovered/Resolved]
